FAERS Safety Report 8566711-1 (Version None)
Quarter: 2012Q3

REPORT INFORMATION
  Report Type: 
  Country: None (occurrence: None)
  Receive Date: 20120803
  Receipt Date: 20120726
  Transmission Date: 20120928
  Serious: Yes (Other)
  Sender: FDA-Public Use
  Company Number: US-JNJFOC-20120800267

PATIENT
  Sex: Male
  Weight: 102.06 kg

DRUGS (3)
  1. REMICADE [Suspect]
     Indication: PSORIATIC ARTHROPATHY
     Route: 042
     Dates: start: 20120501
  2. REMICADE [Suspect]
     Dosage: 7-8 WEEKS
     Route: 042
     Dates: start: 20070501, end: 20120201
  3. LISINOPRIL [Concomitant]
     Indication: BLOOD PRESSURE
     Route: 048
     Dates: start: 19970101

REACTIONS (12)
  - SINUS CONGESTION [None]
  - MALAISE [None]
  - PAIN [None]
  - ARACHNOID CYST [None]
  - TRANSIENT ISCHAEMIC ATTACK [None]
  - EYE PAIN [None]
  - DIARRHOEA [None]
  - INFLUENZA LIKE ILLNESS [None]
  - ABNORMAL SENSATION IN EYE [None]
  - ARTHRITIS [None]
  - HERPES ZOSTER [None]
  - RESPIRATORY TRACT CONGESTION [None]
